FAERS Safety Report 4557844-5 (Version None)
Quarter: 2005Q1

REPORT INFORMATION
  Report Type: 
  Country: None (occurrence: None)
  Receive Date: 20050118
  Receipt Date: 20050404
  Transmission Date: 20050727
  Serious: No
  Sender: FDA-Public Use
  Company Number: 9616

PATIENT
  Age: 35 Year
  Sex: Female

DRUGS (1)
  1. METHOTREXATE [Suspect]
     Indication: PSORIASIS
     Dosage: 7.5 MG WEEKLY

REACTIONS (1)
  - MALIGNANT MELANOMA [None]
